FAERS Safety Report 8565046-0 (Version None)
Quarter: 2012Q3

REPORT INFORMATION
  Report Type: 
  Country: None (occurrence: None)
  Receive Date: 20120724
  Receipt Date: 20120716
  Transmission Date: 20120928
  Serious: Yes (Life-Threatening, Hospitalization, Other)
  Sender: FDA-Public Use
  Company Number: ACO_30968_2012

PATIENT
  Age: 58 Year
  Sex: Male
  Weight: 82.1 kg

DRUGS (3)
  1. AMPYRA [Suspect]
     Indication: MULTIPLE SCLEROSIS
     Dosage: 10MG, QD, ORAL
     Route: 048
     Dates: start: 20100101, end: 20110601
  2. MUSCLE RELAXANTS [Concomitant]
  3. BACLOFEN [Concomitant]

REACTIONS (3)
  - CONVULSION [None]
  - CARDIAC ARREST [None]
  - INAPPROPRIATE SCHEDULE OF DRUG ADMINISTRATION [None]
